FAERS Safety Report 9859499 (Version 2)
Quarter: 2014Q3

REPORT INFORMATION
  Report Type: Spontaneous
  Country: US (occurrence: US)
  Receive Date: 20140131
  Receipt Date: 20140812
  Transmission Date: 20150326
  Serious: Yes (Hospitalization, Other)
  Sender: FDA-Public Use
  Company Number: US-009507513-1401USA014813

PATIENT
  Sex: Female
  Weight: 86 kg

DRUGS (1)
  1. NUVARING [Suspect]
     Active Substance: ETHINYL ESTRADIOL\ETONOGESTREL
     Indication: CONTRACEPTION
     Dosage: UNK
     Route: 067
     Dates: start: 201107

REACTIONS (11)
  - Night sweats [Unknown]
  - Polycystic ovaries [Unknown]
  - Cough [Unknown]
  - Thrombectomy [Unknown]
  - Chills [Unknown]
  - Nasal congestion [Unknown]
  - Atrial thrombosis [Unknown]
  - Pulmonary embolism [Unknown]
  - Anxiety [Unknown]
  - Dysuria [Unknown]
  - Pulmonary mass [Unknown]

NARRATIVE: CASE EVENT DATE: 201111
